FAERS Safety Report 7637157-5 (Version None)
Quarter: 2011Q3

REPORT INFORMATION
  Report Type: 
  Country: None (occurrence: None)
  Receive Date: 20110726
  Receipt Date: 20110719
  Transmission Date: 20111222
  Serious: Yes (Hospitalization)
  Sender: FDA-Public Use
  Company Number: JP-PFIZER INC-2011141691

PATIENT
  Age: 82 Year
  Sex: Female

DRUGS (6)
  1. CALBLOCK [Suspect]
     Indication: HYPERTENSION
     Dosage: 16 MG/DAY
  2. BEZATOL [Concomitant]
     Dosage: UNK
  3. NORVASC [Suspect]
     Indication: HYPERTENSION
     Dosage: 10 MG, 1X/DAY
     Route: 048
     Dates: end: 20110613
  4. HALCION [Concomitant]
     Dosage: UNK
  5. CLARITHROMYCIN [Concomitant]
     Dosage: UNK
  6. ALMARL [Concomitant]
     Dosage: 10 MG/DAY

REACTIONS (2)
  - PLEURAL EFFUSION [None]
  - OEDEMA PERIPHERAL [None]
